FAERS Safety Report 9805466 (Version 1)
Quarter: 2014Q1

REPORT INFORMATION
  Report Type: Spontaneous
  Country: US (occurrence: US)
  Receive Date: 20140109
  Receipt Date: 20140109
  Transmission Date: 20141002
  Serious: No
  Sender: FDA-Public Use
  Company Number: US-PFIZER INC-2014002429

PATIENT
  Age: 57 Year
  Sex: Male
  Weight: 109 kg

DRUGS (5)
  1. ADVIL [Suspect]
     Indication: ARTHRALGIA
     Dosage: 200 MG, AS NEEDED
     Route: 048
     Dates: start: 20131218, end: 20140102
  2. ADVIL [Interacting]
     Indication: ARTHRITIS
  3. WARFARIN [Interacting]
     Indication: ANTICOAGULANT THERAPY
     Dosage: FIRST TWO DAYS 5MG, UNK
     Route: 048
     Dates: start: 2005, end: 2005
  4. WARFARIN [Interacting]
     Dosage: 2.5MG ON THE THIRD DAY AND SO ON, UNK
     Dates: start: 2005
  5. KLONOPIN [Concomitant]
     Dosage: 2 MG, ONCE A DAY AT NIGHT

REACTIONS (3)
  - Inhibitory drug interaction [Recovered/Resolved]
  - Chest pain [Recovered/Resolved]
  - Fall [Recovered/Resolved]
